FAERS Safety Report 7794984-1 (Version None)
Quarter: 2011Q4

REPORT INFORMATION
  Report Type: 
  Country: None (occurrence: None)
  Receive Date: 20111004
  Receipt Date: 20110929
  Transmission Date: 20120403
  Serious: Yes (Death, Other)
  Sender: FDA-Public Use
  Company Number: PHHY2011JP61621

PATIENT
  Age: 72 Year
  Sex: Male
  Weight: 56 kg

DRUGS (27)
  1. EXJADE [Suspect]
     Dosage: 1000 MG, DAILY
     Route: 048
     Dates: start: 20101126, end: 20101202
  2. EXJADE [Suspect]
     Dosage: 1000 MG, DAILY
     Route: 048
     Dates: start: 20101208, end: 20101210
  3. NEUTROGIN [Concomitant]
     Dosage: 250 UG, UNK
     Route: 058
     Dates: start: 20100918
  4. ALDACTONE [Concomitant]
     Dosage: 50 MG, UNK
     Route: 048
     Dates: start: 20101103, end: 20101106
  5. MAGMITT [Concomitant]
     Dosage: 1980 MG, UNK
     Route: 048
     Dates: start: 20100709
  6. MAGMITT [Concomitant]
     Dosage: 1980 MG, UNK
     Route: 048
     Dates: end: 20101205
  7. CIPROFLOXACIN HCL [Concomitant]
     Dosage: 600 MG, UNK
     Route: 041
     Dates: end: 20101129
  8. VANCOMYCIN [Concomitant]
     Dosage: 2 G, UNK
     Route: 041
     Dates: end: 20101207
  9. GLAKAY [Concomitant]
     Indication: MYELODYSPLASTIC SYNDROME
     Dosage: 45 MG, UNK
     Route: 048
     Dates: start: 20100115, end: 20101106
  10. LASIX [Concomitant]
     Dosage: 20 MG, UNK
     Route: 042
     Dates: start: 20101112, end: 20101125
  11. CIPROFLOXACIN HCL [Concomitant]
     Dosage: 600 MG, UNK
     Route: 041
     Dates: start: 20101021
  12. VANCOMYCIN [Concomitant]
     Dosage: 1.5 G, UNK
     Route: 041
     Dates: start: 20101106
  13. PRIMOBOLAN-DEPOT INJ [Concomitant]
     Indication: MYELODYSPLASTIC SYNDROME
     Dosage: 15 MG, UNK
     Route: 048
     Dates: start: 20100115, end: 20101106
  14. OMEPRAZOLE [Concomitant]
     Indication: PROPHYLAXIS
     Dosage: 20 MG, UNK
     Route: 048
     Dates: end: 20101202
  15. LASIX [Concomitant]
     Dosage: 20 MG, UNK
     Route: 048
     Dates: end: 20101202
  16. ITRACONAZOLE [Concomitant]
     Dosage: 200 MG, UNK
     Route: 048
     Dates: start: 20100825, end: 20101106
  17. ZOLPIDEM [Concomitant]
     Dosage: 5 MG, UNK
     Route: 048
     Dates: start: 20101112, end: 20101202
  18. FUNGUARD [Concomitant]
     Dosage: 100 MG, UNK
     Route: 041
     Dates: start: 20101128
  19. POTASSIUM GLUCONATE TAB [Concomitant]
     Dosage: 7.5 G, UNK
     Route: 048
     Dates: start: 20101030
  20. ADONA [Concomitant]
     Dosage: 90 MG, UNK
     Route: 048
     Dates: start: 20101030, end: 20101106
  21. OMEGACIN [Concomitant]
     Dosage: 1.2 G, UNK
     Route: 041
     Dates: start: 20101129
  22. HERBESSOR R [Concomitant]
     Dosage: 200 MG, UNK
     Route: 048
     Dates: start: 20060701, end: 20110101
  23. LASIX [Concomitant]
     Dosage: 20 MG, UNK
     Route: 048
     Dates: start: 20101015
  24. EXJADE [Suspect]
     Indication: IRON OVERLOAD
     Dosage: 1000 MG, DAILY
     Route: 048
     Dates: start: 20101103, end: 20101107
  25. SANDOGLOBULIN [Concomitant]
     Dosage: 5 G, UNK
     Route: 041
     Dates: start: 20101130, end: 20101202
  26. POTASSIUM GLUCONATE TAB [Concomitant]
     Dosage: 7.5 G, UNK
     Route: 048
  27. ROCEPHIN [Concomitant]
     Dosage: 4 G, UNK
     Route: 041
     Dates: start: 20101026, end: 20101129

REACTIONS (7)
  - ENTERITIS INFECTIOUS [None]
  - PNEUMONIA [None]
  - SERUM FERRITIN INCREASED [None]
  - DIARRHOEA [None]
  - HYPERTHERMIA [None]
  - NEOPLASM PROGRESSION [None]
  - NEOPLASM MALIGNANT [None]
